FAERS Safety Report 15826228 (Version 1)
Quarter: 2019Q1

REPORT INFORMATION
  Report Type: Spontaneous
  Country: JP (occurrence: JP)
  Receive Date: 20190115
  Receipt Date: 20190115
  Transmission Date: 20190417
  Serious: Yes (Other)
  Sender: FDA-Public Use
  Company Number: JP-PFIZER INC-2019014480

PATIENT
  Sex: Female

DRUGS (5)
  1. LYRICA [Suspect]
     Active Substance: PREGABALIN
     Dosage: 25 MG, UNK
     Route: 048
  2. LYRICA [Suspect]
     Active Substance: PREGABALIN
     Dosage: UNK
     Route: 048
  3. LYRICA [Suspect]
     Active Substance: PREGABALIN
     Dosage: 75 MG,TWICE A DAY
     Route: 048
  4. ZOLPIDEM [Concomitant]
     Active Substance: ZOLPIDEM\ZOLPIDEM TARTRATE
     Dosage: UNK
     Route: 048
  5. TRIAZOLAM. [Concomitant]
     Active Substance: TRIAZOLAM
     Dosage: UNK
     Route: 048

REACTIONS (8)
  - Angina pectoris [Unknown]
  - Weight decreased [Unknown]
  - Drug effect decreased [Unknown]
  - Hypoaesthesia [Unknown]
  - Malaise [Unknown]
  - Chest discomfort [Unknown]
  - Musculoskeletal stiffness [Unknown]
  - Eye disorder [Unknown]

NARRATIVE: CASE EVENT DATE: 2012
